FAERS Safety Report 8267905-5 (Version None)
Quarter: 2012Q2

REPORT INFORMATION
  Report Type: 
  Country: None (occurrence: None)
  Receive Date: 20120409
  Receipt Date: 20120404
  Transmission Date: 20120825
  Serious: Yes (Death, Hospitalization)
  Sender: FDA-Public Use
  Company Number: US-MEDIMMUNE-MEDI-0012365

PATIENT
  Sex: Male
  Weight: 6.602 kg

DRUGS (7)
  1. KEPPRA [Concomitant]
  2. PREVACID [Concomitant]
  3. SYNAGIS [Suspect]
     Indication: REFSUM'S DISEASE
     Route: 030
     Dates: start: 20101102, end: 20110111
  4. SYNAGIS [Suspect]
     Route: 030
     Dates: start: 20110215, end: 20110316
  5. DIASTAT [Concomitant]
  6. ATIVAN [Concomitant]
  7. ROBINUL [Concomitant]

REACTIONS (3)
  - RESPIRATORY SYNCYTIAL VIRUS BRONCHITIS [None]
  - SEPSIS [None]
  - REFSUM'S DISEASE [None]
